FAERS Safety Report 5337833-3 (Version None)
Quarter: 2007Q2

REPORT INFORMATION
  Report Type: 
  Country: None (occurrence: None)
  Receive Date: 20070308
  Receipt Date: 20061229
  Transmission Date: 20071010
  Serious: No
  Sender: FDA-Public Use
  Company Number: 2007-BP-00060BP

PATIENT
  Age: 96 Year
  Sex: Male

DRUGS (4)
  1. SPIRIVA [Suspect]
     Indication: CHRONIC OBSTRUCTIVE PULMONARY DISEASE
     Dosage: 18 MCG (18 MCG, 1 IN 1 D), IH
     Route: 055
     Dates: start: 20060601, end: 20061201
  2. LASIX [Concomitant]
  3. METHYLPREDNISOLONE [Concomitant]
  4. DIOVAN [Concomitant]

REACTIONS (4)
  - EYE SWELLING [None]
  - OCULAR HYPERAEMIA [None]
  - VISUAL DISTURBANCE [None]
  - WHEEZING [None]
